FAERS Safety Report 15600194 (Version 1)
Quarter: 2018Q4

REPORT INFORMATION
  Report Type: Spontaneous
  Country: US (occurrence: US)
  Receive Date: 20181109
  Receipt Date: 20181109
  Transmission Date: 20190205
  Serious: Yes (Other)
  Sender: FDA-Public Use
  Company Number: US-CIPLA LTD.-2018US22525

PATIENT

DRUGS (9)
  1. LORAZEPAM. [Suspect]
     Active Substance: LORAZEPAM
     Indication: ABDOMINAL PAIN
     Dosage: 2 MG, EVERY 2 HOURS
     Route: 042
  2. MORPHINE [Suspect]
     Active Substance: MORPHINE
     Indication: ABDOMINAL PAIN
     Dosage: 2 MG, EVERY 3 HOURS
     Route: 042
  3. GABAPENTIN. [Suspect]
     Active Substance: GABAPENTIN
     Indication: ABDOMINAL PAIN
     Dosage: 100 MG, EVERY 8 HOURS (TID)
     Route: 048
  4. OXYCODONE [Suspect]
     Active Substance: OXYCODONE
     Indication: ABDOMINAL PAIN
     Dosage: 130 MG, EVERY 8 HOURS (TID)
     Route: 048
  5. METHADONE [Suspect]
     Active Substance: METHADONE HYDROCHLORIDE
     Dosage: 15 MG, EVERY 8 HOURS (TID)
     Route: 048
  6. HYDROMORPHONE [Suspect]
     Active Substance: HYDROMORPHONE
     Indication: ABDOMINAL PAIN
     Dosage: 3 MG, PRN PAIN, EVERY 3 HOURS
     Route: 042
  7. FENTANYL. [Suspect]
     Active Substance: FENTANYL
     Indication: ABDOMINAL PAIN
     Dosage: 50 MCG, EVERY HOUR
     Route: 042
  8. OXYCODONE [Suspect]
     Active Substance: OXYCODONE
     Dosage: 60 MG, EVERY 8 HOURS (TID)
     Route: 048
  9. METHADONE [Suspect]
     Active Substance: METHADONE HYDROCHLORIDE
     Indication: ABDOMINAL PAIN
     Dosage: 15 MG, EVERY 8 HOURS (TID)
     Route: 048

REACTIONS (1)
  - Treatment failure [Unknown]
